FAERS Safety Report 10672489 (Version 3)
Quarter: 2017Q1

REPORT INFORMATION
  Report Type: Spontaneous
  Country: US (occurrence: US)
  Receive Date: 20141223
  Receipt Date: 20170314
  Transmission Date: 20170428
  Serious: Yes (Other)
  Sender: FDA-Public Use
  Company Number: US-ELI_LILLY_AND_COMPANY-US201412006873

PATIENT
  Sex: Female
  Weight: 65 kg

DRUGS (10)
  1. CYMBALTA [Suspect]
     Active Substance: DULOXETINE HYDROCHLORIDE
     Dosage: 40 MG, UNKNOWN
     Route: 065
     Dates: start: 20151231
  2. CYMBALTA [Suspect]
     Active Substance: DULOXETINE HYDROCHLORIDE
     Dosage: 60 MG, UNKNOWN
     Route: 065
  3. CYMBALTA [Suspect]
     Active Substance: DULOXETINE HYDROCHLORIDE
     Dosage: 20 MG, QD
     Route: 065
     Dates: start: 20151005
  4. CYMBALTA [Suspect]
     Active Substance: DULOXETINE HYDROCHLORIDE
     Dosage: UNK UNK, UNKNOWN
     Route: 048
     Dates: start: 2006
  5. CYMBALTA [Suspect]
     Active Substance: DULOXETINE HYDROCHLORIDE
     Dosage: 40 MG, QD
     Route: 065
     Dates: start: 20150831
  6. CYMBALTA [Suspect]
     Active Substance: DULOXETINE HYDROCHLORIDE
     Dosage: 3 DF, QD
     Route: 048
     Dates: start: 20051219
  7. CYMBALTA [Suspect]
     Active Substance: DULOXETINE HYDROCHLORIDE
     Indication: PAIN
     Dosage: UNK UNK, UNKNOWN
     Route: 065
     Dates: start: 2004, end: 201301
  8. CYMBALTA [Suspect]
     Active Substance: DULOXETINE HYDROCHLORIDE
     Indication: NEURALGIA
     Dosage: 2 DF, QD
     Route: 048
     Dates: start: 20051011
  9. CYMBALTA [Suspect]
     Active Substance: DULOXETINE HYDROCHLORIDE
     Dosage: 90 MG, UNKNOWN
     Route: 065
  10. SERTRALINE [Concomitant]
     Active Substance: SERTRALINE HYDROCHLORIDE
     Indication: PRODUCT USED FOR UNKNOWN INDICATION
     Dosage: 12.5 MG, UNKNOWN
     Route: 065

REACTIONS (21)
  - Agitation [Unknown]
  - Vertigo [Unknown]
  - Drug withdrawal syndrome [Unknown]
  - Confusional state [Unknown]
  - Nausea [Unknown]
  - Diarrhoea [Unknown]
  - Paraesthesia [Unknown]
  - Off label use [Unknown]
  - Dysphoria [Unknown]
  - Emotional disorder [Unknown]
  - Wrong technique in product usage process [Unknown]
  - Sinusitis [Unknown]
  - Insomnia [Unknown]
  - Dizziness [Unknown]
  - Irritability [Unknown]
  - Depressed mood [Unknown]
  - Fatigue [Unknown]
  - Mood swings [Unknown]
  - Dizziness [Unknown]
  - Hyperhidrosis [Unknown]
  - Headache [Unknown]

NARRATIVE: CASE EVENT DATE: 2013
